FAERS Safety Report 8384508-2 (Version None)
Quarter: 2012Q2

REPORT INFORMATION
  Report Type: 
  Country: None (occurrence: None)
  Receive Date: 20120524
  Receipt Date: 20120515
  Transmission Date: 20120825
  Serious: Yes (Hospitalization, Other)
  Sender: FDA-Public Use
  Company Number: DE-ELI_LILLY_AND_COMPANY-DE201204004107

PATIENT
  Sex: Male
  Weight: 104 kg

DRUGS (8)
  1. ALIMTA [Suspect]
     Indication: LUNG NEOPLASM MALIGNANT
     Dosage: 500 MG/M2, UNKNOWN
     Route: 042
     Dates: start: 20120126
  2. SPIRIVA [Concomitant]
     Dosage: 18 UG, 1-0-0
  3. FOLIC ACID [Concomitant]
     Dosage: 0.4 MG, 1-0-0
  4. DEXAMETHASONE [Concomitant]
     Dosage: 1-0-1
  5. CISPLATIN [Concomitant]
     Indication: TRACHEAL CANCER
     Dosage: 160 MG, UNK
     Dates: start: 20120126
  6. FLUTICASONE PROPIONATE/SALMETEROL [Concomitant]
     Dosage: 2-0-2
  7. PANTOPRAZOLE [Concomitant]
     Dosage: 40 MG, 1-0-1
  8. VITAMIN B-12 [Concomitant]

REACTIONS (5)
  - TRANSMISSION OF AN INFECTIOUS AGENT VIA A MEDICINAL PRODUCT [None]
  - INFECTION [None]
  - PYREXIA [None]
  - C-REACTIVE PROTEIN INCREASED [None]
  - LEUKOCYTOSIS [None]
